FAERS Safety Report 12964170 (Version 1)
Quarter: 2016Q4

REPORT INFORMATION
  Report Type: Spontaneous
  Country: IT (occurrence: IT)
  Receive Date: 20161122
  Receipt Date: 20161122
  Transmission Date: 20170207
  Serious: Yes (Hospitalization)
  Sender: FDA-Public Use
  Company Number: IT-WARNER CHILCOTT, LLC-1059912

PATIENT
  Age: 68 Year
  Sex: Female

DRUGS (2)
  1. FOSAVANCE [Concomitant]
     Active Substance: ALENDRONATE SODIUM\CHOLECALCIFEROL
     Route: 048
     Dates: start: 20120102, end: 20140101
  2. OPTINATE [Suspect]
     Active Substance: RISEDRONATE SODIUM
     Indication: OSTEOPOROSIS
     Route: 048
     Dates: start: 20100101, end: 20120101

REACTIONS (3)
  - Implant site infection [Recovered/Resolved]
  - Purulent discharge [Recovered/Resolved]
  - Exposed bone in jaw [Recovered/Resolved]

NARRATIVE: CASE EVENT DATE: 20150101
